FAERS Safety Report 9155275 (Version 1)
Quarter: 2013Q1

REPORT INFORMATION
  Report Type: Spontaneous
  Country: SG (occurrence: None)
  Receive Date: 20130208
  Receipt Date: 20130208
  Transmission Date: 20140127
  Serious: Yes (Hospitalization)
  Sender: FDA-Public Use
  Company Number: 2013AP000963

PATIENT
  Age: 53 Year
  Sex: Male

DRUGS (5)
  1. CLOPIDOGREL (CLOPIDOGREL) [Suspect]
     Indication: ACUTE MYOCARDIAL INFARCTION
  2. CLOPIDOGREL (CLOPIDOGREL) [Suspect]
     Indication: ANTIPLATELET THERAPY
  3. ASPIRIN (ACETYLSALICYLIC ACID) [Concomitant]
  4. ABCIXIMAB (ABCIXIMAB) [Concomitant]
  5. EVEROLIMUS [Concomitant]

REACTIONS (9)
  - Disease recurrence [None]
  - Thrombosis in device [None]
  - Therapeutic response decreased [None]
  - Dyspepsia [None]
  - Rash [None]
  - Chest pain [None]
  - Electrocardiogram Q waves [None]
  - Electrocardiogram T wave inversion [None]
  - Drug intolerance [None]
